FAERS Safety Report 5701850-1 (Version None)
Quarter: 2008Q2

REPORT INFORMATION
  Report Type: 
  Country: None (occurrence: None)
  Receive Date: 20080408
  Receipt Date: 20080331
  Transmission Date: 20081010
  Serious: Yes (Other)
  Sender: FDA-Public Use
  Company Number: L08-FRA-01286-01

PATIENT
  Age: 69 Year
  Sex: Female

DRUGS (3)
  1. INDOMETHACIN [Suspect]
  2. LITHIUM CARBONATE [Concomitant]
  3. ISOTONIC GLUCOSE [Concomitant]

REACTIONS (3)
  - ANAEMIA HAEMOLYTIC AUTOIMMUNE [None]
  - BLOOD PARATHYROID HORMONE INCREASED [None]
  - HYPERCALCAEMIA [None]
